FAERS Safety Report 4679884-8 (Version None)
Quarter: 2005Q2

REPORT INFORMATION
  Report Type: 
  Country: None (occurrence: None)
  Receive Date: 20050602
  Receipt Date: 20050208
  Transmission Date: 20051028
  Serious: No
  Sender: FDA-Public Use
  Company Number: US-GLAXOSMITHKLINE-A0544515A

PATIENT
  Age: 49 Year
  Sex: Male

DRUGS (2)
  1. AUGMENTIN [Suspect]
     Indication: OTITIS MEDIA
     Dosage: 875MG TWICE PER DAY
     Route: 048
     Dates: start: 20050201
  2. MOTRIN [Concomitant]

REACTIONS (1)
  - TINNITUS [None]
